FAERS Safety Report 19056879 (Version 1)
Quarter: 2021Q1

REPORT INFORMATION
  Report Type: Spontaneous
  Country: CN (occurrence: CN)
  Receive Date: 20210325
  Receipt Date: 20210325
  Transmission Date: 20210420
  Serious: Yes (Hospitalization, Other)
  Sender: FDA-Public Use
  Company Number: CN-PFIZER INC-2021276795

PATIENT
  Age: 54 Year
  Sex: Female
  Weight: 56 kg

DRUGS (3)
  1. CARBOPLATIN. [Suspect]
     Active Substance: CARBOPLATIN
     Indication: NEOPLASM MALIGNANT
     Dosage: 0.55 G, 1X/DAY
     Route: 041
     Dates: start: 20210226, end: 20210226
  2. ANZATAX [PACLITAXEL] [Suspect]
     Active Substance: PACLITAXEL
     Indication: NEOPLASM MALIGNANT
     Dosage: 30 MG, 1X/DAY
     Route: 041
     Dates: start: 20210226, end: 20210226
  3. ANZATAX [PACLITAXEL] [Suspect]
     Active Substance: PACLITAXEL
     Dosage: 240 MG, 1X/DAY
     Route: 041
     Dates: start: 20210226, end: 20210226

REACTIONS (1)
  - Hepatic function abnormal [Recovering/Resolving]

NARRATIVE: CASE EVENT DATE: 20210304
